FAERS Safety Report 21273233 (Version 4)
Quarter: 2023Q2

REPORT INFORMATION
  Report Type: Report from Study
  Country: CA (occurrence: CA)
  Receive Date: 20220831
  Receipt Date: 20230404
  Transmission Date: 20230722
  Serious: Yes (Other)
  Sender: FDA-Public Use
  Company Number: CA-NOVARTISPH-NVSC2022CA192080

PATIENT
  Age: 68 Year
  Sex: Female

DRUGS (1)
  1. HYRIMOZ [Suspect]
     Active Substance: ADALIMUMAB-ADAZ
     Indication: Behcet^s syndrome
     Dosage: 40 MG
     Route: 058
     Dates: start: 20220329

REACTIONS (5)
  - Pneumonia bacterial [Unknown]
  - Fatigue [Unknown]
  - COVID-19 [Unknown]
  - Asthenia [Not Recovered/Not Resolved]
  - Off label use [Unknown]
